FAERS Safety Report 17399749 (Version 1)
Quarter: 2020Q1

REPORT INFORMATION
  Report Type: Spontaneous
  Country: US (occurrence: US)
  Receive Date: 20200211
  Receipt Date: 20200211
  Transmission Date: 20200409
  Serious: No
  Sender: FDA-Public Use
  Company Number: US-CELGENEUS-USA-20200201773

PATIENT
  Age: 83 Year
  Sex: Female

DRUGS (1)
  1. REVLIMID [Suspect]
     Active Substance: LENALIDOMIDE
     Indication: PLASMA CELL MYELOMA
     Dosage: 10 MILLIGRAM
     Route: 048
     Dates: start: 20200113, end: 20200205

REACTIONS (7)
  - Fatigue [Unknown]
  - Mobility decreased [Unknown]
  - Sedation [Unknown]
  - Tremor [Unknown]
  - Night sweats [Unknown]
  - Drug intolerance [Unknown]
  - Insomnia [Unknown]

NARRATIVE: CASE EVENT DATE: 20200120
